FAERS Safety Report 26068861 (Version 1)
Quarter: 2025Q4

REPORT INFORMATION
  Report Type: Spontaneous
  Country: US (occurrence: US)
  Receive Date: 20251120
  Receipt Date: 20251120
  Transmission Date: 20260117
  Serious: Yes (Death, Life-Threatening, Hospitalization, Disabling)
  Sender: TEVA
  Company Number: US-TEVA-VS-3392234

PATIENT
  Age: 78 Year
  Sex: Male

DRUGS (27)
  1. ZOLPIDEM [Suspect]
     Active Substance: ZOLPIDEM TARTRATE
     Indication: Insomnia
     Route: 048
     Dates: start: 20230421
  2. ENFORTUMAB VEDOTIN [Suspect]
     Active Substance: ENFORTUMAB VEDOTIN
     Indication: Bladder cancer
     Dosage: TIME INTERVAL: CYCLICAL: LOT NUMBER: 72797.12/1-306971-TJ. DOSE: 1.25 MG, CYCLIC (ON DAY 1 AND 8 ...
     Route: 042
     Dates: start: 20231023, end: 20231030
  3. ENFORTUMAB VEDOTIN [Suspect]
     Active Substance: ENFORTUMAB VEDOTIN
     Indication: Bladder cancer
     Dosage: TIME INTERVAL: CYCLICAL: LOT NUMBER: 72797.12/1-306971-TJ. DOSE: 1.25 MG, CYCLIC (ON DAY 1 AND 8 ...
     Route: 042
     Dates: start: 20231120, end: 20231219
  4. TREMELIMUMAB [Suspect]
     Active Substance: TREMELIMUMAB
     Indication: Bladder cancer
     Dosage: 75 MILLIGRAM, SINGLE
     Route: 042
     Dates: start: 20231023, end: 20231023
  5. TREMELIMUMAB [Suspect]
     Active Substance: TREMELIMUMAB
     Indication: Bladder cancer
     Dosage: 75 MILLIGRAM, SINGLE
     Route: 042
     Dates: start: 20231128, end: 20231128
  6. NIVOLUMAB [Suspect]
     Active Substance: NIVOLUMAB
     Indication: Bladder cancer
     Route: 042
  7. DURVALUMAB [Suspect]
     Active Substance: DURVALUMAB
     Indication: Bladder cancer
     Dosage: 1500 MILLIGRAM SINGLE
     Route: 042
     Dates: start: 20231023, end: 20231023
  8. DURVALUMAB [Suspect]
     Active Substance: DURVALUMAB
     Indication: Bladder cancer
     Dosage: 71.42 MILLIGRAM(S) (1500 MILLIGRAM(S), 1 IN 3 WEEK)
     Route: 042
     Dates: start: 20231120, end: 20231212
  9. ALBUTEROL [Concomitant]
     Active Substance: ALBUTEROL
     Indication: Chronic obstructive pulmonary disease
     Dosage: 90 ?G, AS NEEDED, ROUTE OF ADMINISTRATION: RESPIRATORY (INHALATION)
     Dates: start: 2006
  10. ALBUTEROL [Concomitant]
     Active Substance: ALBUTEROL
     Indication: Chronic obstructive pulmonary disease
     Dosage: 2.5 MILLIGRAM, PRN, ROUTE OF ADMINISTRATION: RESPIRATORY (INHALATION)
     Dates: start: 20240303, end: 20240314
  11. FLUTICASONE PROPIONATE [Concomitant]
     Active Substance: FLUTICASONE PROPIONATE
     Indication: Chronic obstructive pulmonary disease
     Dosage: 100 ?G, AS NEEDED, ROUTE OF ADMINISTRATION: RESPIRATORY (INHALATION)
     Dates: start: 2006
  12. LISINOPRIL [Concomitant]
     Active Substance: LISINOPRIL
     Indication: Hypertension
     Route: 048
     Dates: start: 2019
  13. ACETAMINOPHEN [Concomitant]
     Active Substance: ACETAMINOPHEN
     Indication: Abdominal pain
     Dosage: 650 MG, AS NEEDED
     Route: 048
     Dates: start: 202303
  14. ACETAMINOPHEN [Concomitant]
     Active Substance: ACETAMINOPHEN
     Indication: Abdominal pain
     Route: 048
     Dates: start: 202304, end: 20231113
  15. DOCUSATE SODIUM [Concomitant]
     Active Substance: DOCUSATE SODIUM
     Indication: Constipation
     Dosage: 100 MG, AS NEEDED
     Route: 048
     Dates: start: 20231011
  16. LORATADINE [Concomitant]
     Active Substance: LORATADINE
     Indication: Seasonal allergy
     Dosage: 10 MG, AS NEEDED
     Route: 048
     Dates: start: 2017
  17. COMPAZINE [Concomitant]
     Active Substance: PROCHLORPERAZINE MALEATE
     Indication: Nausea
     Dosage: 10 MG, AS NEEDED
     Route: 048
     Dates: start: 20231023
  18. ONDANSETRON [Concomitant]
     Active Substance: ONDANSETRON
     Indication: Prophylaxis of nausea and vomiting
     Dosage: 4 MG, AS NEEDED
     Route: 048
     Dates: start: 20230918, end: 20231023
  19. ONDANSETRON [Concomitant]
     Active Substance: ONDANSETRON
     Indication: Prophylaxis of nausea and vomiting
     Dosage: 8 MG, OTHER (ONCE/SINGLE ADMINISTRATION)
     Route: 042
     Dates: start: 20231023, end: 20231023
  20. ONDANSETRON [Concomitant]
     Active Substance: ONDANSETRON
     Indication: Prophylaxis of nausea and vomiting
     Dosage: 8 MG, AS NEEDED
     Route: 042
     Dates: start: 20231030
  21. ONDANSETRON [Concomitant]
     Active Substance: ONDANSETRON
     Indication: Prophylaxis of nausea and vomiting
     Dosage: 8 MG, AS NEEDED
     Route: 042
     Dates: start: 20240227, end: 20240314
  22. METHIMAZOLE [Concomitant]
     Active Substance: METHIMAZOLE
     Indication: Hyperthyroidism
     Dosage: 7.5 MILLIGRAM(S) (2.5 MILLIGRAM(S), 3 IN 1 WEEK)
     Route: 048
     Dates: start: 20231201
  23. MELATONIN [Concomitant]
     Active Substance: MELATONIN
     Indication: Insomnia
     Dosage: 3 MG, AS NEEDED
     Route: 048
     Dates: start: 20231103
  24. ATORVASTATIN [Concomitant]
     Active Substance: ATORVASTATIN
     Indication: Hyperlipidaemia
     Route: 048
     Dates: start: 20230221
  25. SALMETEROL [Concomitant]
     Active Substance: SALMETEROL
     Indication: Chronic obstructive pulmonary disease
     Dosage: ROUTE OF ADMINISTRATION: RESPIRATORY (INHALATION)
     Dates: start: 2006
  26. FLUCONAZOLE [Concomitant]
     Active Substance: FLUCONAZOLE
     Indication: Enterocolitis infectious
     Route: 048
     Dates: start: 20240204, end: 20240206
  27. VANCOMYCIN HYDROCHLORIDE [Concomitant]
     Active Substance: VANCOMYCIN HYDROCHLORIDE
     Indication: Enterocolitis infectious
     Dosage: 500.0 MILLIGRAM(S) (125 MILLIGRAM(S), 4 IN 1 DAY)
     Route: 048
     Dates: start: 20240207, end: 20240211

REACTIONS (3)
  - Large intestine perforation [Fatal]
  - Pneumonia aspiration [Not Recovered/Not Resolved]
  - Sepsis [Recovered/Resolved]

NARRATIVE: CASE EVENT DATE: 20240226
